FAERS Safety Report 15706181 (Version 1)
Quarter: 2018Q4

REPORT INFORMATION
  Report Type: Spontaneous
  Country: KR (occurrence: KR)
  Receive Date: 20181210
  Receipt Date: 20181210
  Transmission Date: 20190205
  Serious: Yes (Death)
  Sender: FDA-Public Use
  Company Number: KR-JNJFOC-20180913914

PATIENT
  Age: 8 Decade
  Sex: Male
  Weight: 50 kg

DRUGS (1)
  1. SYLVANT [Suspect]
     Active Substance: SILTUXIMAB
     Indication: CASTLEMAN^S DISEASE
     Dosage: 550MG WAS RECONSTITUTED AMONG 600MG, 6 VIALS
     Route: 042
     Dates: start: 201808

REACTIONS (2)
  - Death [Fatal]
  - Liver function test increased [Unknown]

NARRATIVE: CASE EVENT DATE: 2018
